FAERS Safety Report 13123687 (Version 1)
Quarter: 2017Q1

REPORT INFORMATION
  Report Type: Not Available
  Country: None (occurrence: None)
  Receive Date: 20170117
  Receipt Date: 20170117
  Transmission Date: 20170428
  Serious: Yes (Other)
  Sender: FDA-Public Use
  Company Number: --2017-IR-000002

PATIENT
  Age: 43 Year
  Sex: Female

DRUGS (1)
  1. METRONIDAZOLE BRAND UNSPECIFIED (VIVIMED) [Suspect]
     Active Substance: METRONIDAZOLE
     Indication: HELICOBACTER INFECTION
     Dosage: 28 GRAM

REACTIONS (7)
  - Deafness bilateral [Recovered/Resolved]
  - Neurotoxicity [None]
  - Deafness neurosensory [None]
  - Encephalopathy [Recovered/Resolved]
  - Cerebellar ataxia [Recovered/Resolved]
  - Abdominal discomfort [Recovered/Resolved]
  - Toxic encephalopathy [None]
